FAERS Safety Report 8942942 (Version 1)
Quarter: 2012Q4

REPORT INFORMATION
  Report Type: Spontaneous
  Country: US (occurrence: None)
  Receive Date: 20121121
  Receipt Date: 20121121
  Transmission Date: 20130627
  Serious: Yes (Other)
  Sender: FDA-Public Use
  Company Number: AUR-APL-2012-04931

PATIENT
  Age: 51 Year
  Sex: Male

DRUGS (5)
  1. QUETIAPINE [Suspect]
     Indication: DEPRESSION
  2. BUPROPION [Concomitant]
  3. LISINOPRIL (LISINOPRIL) [Concomitant]
  4. HYDROCHLOROTHIAZIDE (HYDROCHLOROTHIAZIDE) [Concomitant]
  5. LORATADINE (LORATADINE) [Concomitant]

REACTIONS (8)
  - Somnolence [None]
  - Somnambulism [None]
  - Sleep-related eating disorder [None]
  - Amnesia [None]
  - Sleep-related eating disorder [None]
  - Hypertension [None]
  - Sleep apnoea syndrome [None]
  - Weight decreased [None]
